FAERS Safety Report 5806165-9 (Version None)
Quarter: 2008Q3

REPORT INFORMATION
  Report Type: 
  Country: None (occurrence: None)
  Receive Date: 20080709
  Receipt Date: 20080709
  Transmission Date: 20090109
  Serious: Yes (Life-Threatening, Hospitalization)
  Sender: FDA-Public Use
  Company Number: None

PATIENT
  Age: 64 Year
  Sex: Male
  Weight: 131.8 kg

DRUGS (4)
  1. POTASSIUM CHLORIDE [Suspect]
     Indication: CARDIAC FAILURE CONGESTIVE
     Dosage: 16 MEQ EVERY DAY PO
     Route: 048
     Dates: start: 20070321, end: 20080616
  2. POTASSIUM CHLORIDE [Suspect]
     Indication: HYPERTENSION
     Dosage: 16 MEQ EVERY DAY PO
     Route: 048
     Dates: start: 20070321, end: 20080616
  3. LISINOPRIL [Suspect]
     Indication: CARDIAC FAILURE CONGESTIVE
     Dosage: 40 MG EVERY DAY PO
     Route: 048
     Dates: start: 20030918, end: 20080616
  4. LISINOPRIL [Suspect]
     Indication: HYPERTENSION
     Dosage: 40 MG EVERY DAY PO
     Route: 048
     Dates: start: 20030918, end: 20080616

REACTIONS (2)
  - EXPIRED DRUG ADMINISTERED [None]
  - HYPERKALAEMIA [None]
